FAERS Safety Report 8223854-X (Version None)
Quarter: 2012Q1

REPORT INFORMATION
  Report Type: 
  Country: None (occurrence: None)
  Receive Date: 20120321
  Receipt Date: 20120319
  Transmission Date: 20120608
  Serious: Yes (Hospitalization, Disabling)
  Sender: FDA-Public Use
  Company Number: US-PFIZER INC-2012071540

PATIENT
  Sex: Female
  Weight: 53.515 kg

DRUGS (2)
  1. ALPRAZOLAM [Suspect]
     Indication: ANXIETY
     Dosage: 1 MG, 2X/DAY
     Route: 048
     Dates: start: 20070101
  2. CYCLOBENZAPRINE [Concomitant]
     Dosage: 5 MG, UNK

REACTIONS (6)
  - VISUAL ACUITY REDUCED [None]
  - BLOOD CALCIUM DECREASED [None]
  - ANXIETY [None]
  - THYROID DISORDER [None]
  - DEPRESSION [None]
  - PAIN [None]
